FAERS Safety Report 20755722 (Version 1)
Quarter: 2022Q2

REPORT INFORMATION
  Report Type: Other
  Country: CA (occurrence: CA)
  Receive Date: 20220427
  Receipt Date: 20220427
  Transmission Date: 20220721
  Serious: Yes (Other)
  Sender: FDA-Public Use
  Company Number: CA-APOTEX-2022AP006419

PATIENT
  Sex: Female

DRUGS (1)
  1. PREGABALIN [Suspect]
     Active Substance: PREGABALIN
     Indication: Secondary progressive multiple sclerosis
     Dosage: UNK
     Route: 065

REACTIONS (4)
  - Poisoning [Unknown]
  - Product use in unapproved indication [Unknown]
  - Relapsing-remitting multiple sclerosis [Unknown]
  - Weight decreased [Unknown]
